FAERS Safety Report 23014144 (Version 2)
Quarter: 2023Q4

REPORT INFORMATION
  Report Type: Report from Study
  Country: CO (occurrence: CO)
  Receive Date: 20231002
  Receipt Date: 20231027
  Transmission Date: 20240110
  Serious: Yes (Hospitalization, Other)
  Sender: FDA-Public Use
  Company Number: CO-BAYER-2023A123802

PATIENT
  Age: 81 Year
  Sex: Female

DRUGS (3)
  1. EYLEA [Suspect]
     Active Substance: AFLIBERCEPT
     Indication: Neovascular age-related macular degeneration
     Dosage: 2 MG, SOLUTION FOR INJECTION, 40MG/ML
     Dates: start: 20230420
  2. CORTIOFTAL [Concomitant]
     Indication: Age-related macular degeneration
     Dosage: 1 DROP, Q4HR
     Dates: start: 20230821
  3. VIGAMOX [Concomitant]
     Active Substance: MOXIFLOXACIN HYDROCHLORIDE
     Indication: Age-related macular degeneration
     Dosage: 1 DROP, Q4HR
     Dates: start: 20230821

REACTIONS (2)
  - Hip fracture [Not Recovered/Not Resolved]
  - Cataract operation [Recovered/Resolved]

NARRATIVE: CASE EVENT DATE: 20230821
